FAERS Safety Report 7032099-0 (Version None)
Quarter: 2010Q4

REPORT INFORMATION
  Report Type: 
  Country: None (occurrence: None)
  Receive Date: 20101007
  Receipt Date: 20100928
  Transmission Date: 20110411
  Serious: Yes (Hospitalization)
  Sender: FDA-Public Use
  Company Number: US-WYE-H17832710

PATIENT
  Sex: Male
  Weight: 94.43 kg

DRUGS (8)
  1. TORISEL [Suspect]
     Indication: PROSTATE CANCER RECURRENT
     Dates: start: 20100923, end: 20100923
  2. ZOCOR [Concomitant]
     Route: 048
  3. LUPRON [Concomitant]
     Dosage: 22.5MG ONE TIME
     Route: 030
  4. CASODEX [Concomitant]
     Dosage: 50MG EVERY MORNING WITH BREAKFAST
     Route: 048
  5. SYNTHROID [Concomitant]
     Route: 048
  6. CITRUCEL [Concomitant]
     Dosage: 2 CAPS AT BEDTIME
     Route: 048
  7. COUMADIN [Concomitant]
     Indication: PROPHYLAXIS
     Dosage: 5MG AS DIRECTED
  8. AMBIEN [Concomitant]
     Dosage: 5MG AT BEDTIME AS NEEDED
     Route: 048

REACTIONS (1)
  - LARGE INTESTINAL OBSTRUCTION [None]
